FAERS Safety Report 5199685-4 (Version None)
Quarter: 2007Q1

REPORT INFORMATION
  Report Type: 
  Country: None (occurrence: None)
  Receive Date: 20070105
  Receipt Date: 20061227
  Transmission Date: 20070707
  Serious: Yes (Other)
  Sender: FDA-Public Use
  Company Number: GB-JNJFOC-20061201144

PATIENT
  Sex: Female

DRUGS (4)
  1. REMINYL [Suspect]
     Indication: DRUG USE FOR UNKNOWN INDICATION
     Route: 048
  2. TRIHEXYPHENIDYL HCL [Interacting]
     Indication: DRUG USE FOR UNKNOWN INDICATION
  3. QUETIAPINE FUMARATE [Concomitant]
  4. ZOPICLONE [Concomitant]

REACTIONS (2)
  - DRUG INTERACTION [None]
  - TREMOR [None]
